FAERS Safety Report 19799405 (Version 1)
Quarter: 2021Q3

REPORT INFORMATION
  Report Type: Spontaneous
  Country: IN (occurrence: IN)
  Receive Date: 20210907
  Receipt Date: 20210907
  Transmission Date: 20211014
  Serious: Yes (Disabling, Other)
  Sender: FDA-Public Use
  Company Number: IN-TORRENT-00002886

PATIENT
  Age: 54 Year
  Sex: Female

DRUGS (1)
  1. TOPIRAMATE. [Suspect]
     Active Substance: TOPIRAMATE
     Indication: DEPRESSION
     Route: 048

REACTIONS (7)
  - Intraocular pressure decreased [Recovered/Resolved]
  - Choroidal detachment [Recovered/Resolved]
  - Endophthalmitis [Recovered/Resolved]
  - Uveitis [Recovered/Resolved]
  - Iridocyclitis [Recovered/Resolved]
  - Narrow anterior chamber angle [Recovered/Resolved]
  - Hypopyon [Recovered/Resolved]
